FAERS Safety Report 26059421 (Version 1)
Quarter: 2025Q4

REPORT INFORMATION
  Report Type: Spontaneous
  Country: US (occurrence: US)
  Receive Date: 20251118
  Receipt Date: 20251118
  Transmission Date: 20260118
  Serious: No
  Sender: CSL BEHRING
  Company Number: US-BEH-2025225878

PATIENT
  Age: 6 Decade
  Sex: Female

DRUGS (3)
  1. HIZENTRA [Suspect]
     Active Substance: HUMAN IMMUNOGLOBULIN G
     Indication: Immunodeficiency common variable
     Dosage: 10 G, EVERY 2 WEEKS
     Route: 058
     Dates: start: 202402
  2. HIZENTRA [Suspect]
     Active Substance: HUMAN IMMUNOGLOBULIN G
     Dosage: 4 G, EVERY 2 WEEKS
     Route: 058
     Dates: start: 202402
  3. HIZENTRA [Suspect]
     Active Substance: HUMAN IMMUNOGLOBULIN G
     Dosage: 1 G, EVERY 2 WEEKS
     Route: 058
     Dates: start: 202402

REACTIONS (1)
  - Bronchitis [Unknown]
